FAERS Safety Report 13535897 (Version 1)
Quarter: 2017Q2

REPORT INFORMATION
  Report Type: Spontaneous
  Country: CA (occurrence: CA)
  Receive Date: 20170511
  Receipt Date: 20170511
  Transmission Date: 20170830
  Serious: Yes (Death, Other)
  Sender: FDA-Public Use
  Company Number: CA-AUROBINDO-AUR-APL-2017-33943

PATIENT

DRUGS (19)
  1. ERYTHROMYCIN. [Suspect]
     Active Substance: ERYTHROMYCIN
     Indication: PRODUCT USED FOR UNKNOWN INDICATION
     Route: 064
  2. MEROPENEM. [Suspect]
     Active Substance: MEROPENEM
     Indication: RESPIRATORY TRACT INFECTION
     Dosage: 20 MILLIGRAM(S)/KILOGRAM EVERY 12 HOURS
     Route: 042
  3. CEFOTAXIME [Suspect]
     Active Substance: CEFOTAXIME SODIUM
     Indication: EVIDENCE BASED TREATMENT
     Dosage: 50 MILLIGRAM(S)/KILOGRAM;INJECTION;EVERY 6 HOURS
     Route: 042
  4. CEFOTAXIME [Suspect]
     Active Substance: CEFOTAXIME SODIUM
     Indication: ANTIBIOTIC THERAPY
  5. AMPICILLIN [Suspect]
     Active Substance: AMPICILLIN
     Indication: EVIDENCE BASED TREATMENT
  6. LEVOFLOXACIN. [Suspect]
     Active Substance: LEVOFLOXACIN
     Indication: STENOTROPHOMONAS INFECTION
     Dosage: 10 MILLIGRAM(S)/KILOGRAM EVERY 12 HOURS
     Route: 048
  7. TRIMETHOPRIM SULFAMETHOXAZOLE [Suspect]
     Active Substance: SULFAMETHOXAZOLE\TRIMETHOPRIM
     Dosage: 2.5 MILLIGRAM(S)/KILOGRAM EVERY 6 HOURS
     Route: 048
  8. GENTAMICIN SULFATE. [Suspect]
     Active Substance: GENTAMICIN SULFATE
     Indication: EVIDENCE BASED TREATMENT
  9. TRIMETHOPRIM SULFAMETHOXAZOLE [Suspect]
     Active Substance: SULFAMETHOXAZOLE\TRIMETHOPRIM
     Indication: STENOTROPHOMONAS INFECTION
     Dosage: 5 MILLIGRAM(S)/KILOGRAM EVERY 6 HOURS
     Route: 048
  10. TRIMETHOPRIM SULFAMETHOXAZOLE [Suspect]
     Active Substance: SULFAMETHOXAZOLE\TRIMETHOPRIM
     Dosage: 1 MILLIGRAM(S)/KILOGRAM EVERY12 HOURS
     Route: 048
  11. VANCOMYCIN [Suspect]
     Active Substance: VANCOMYCIN
     Indication: EVIDENCE BASED TREATMENT
  12. VANCOMYCIN [Suspect]
     Active Substance: VANCOMYCIN
     Indication: ANTIBIOTIC THERAPY
  13. AMPICILLIN [Suspect]
     Active Substance: AMPICILLIN
     Indication: ANTIBIOTIC THERAPY
     Dosage: 50 MILLIGRAM(S)/KILOGRAM;EVERY 12 HOURS
     Route: 064
  14. GENTAMICIN SULFATE. [Suspect]
     Active Substance: GENTAMICIN SULFATE
     Indication: ANTIBIOTIC THERAPY
     Dosage: 5 MILLIGRAM(S)/KILOGRAM
     Route: 065
  15. TRIMETHOPRIM SULFAMETHOXAZOLE [Suspect]
     Active Substance: SULFAMETHOXAZOLE\TRIMETHOPRIM
     Dosage: 3 MILLIGRAM(S)/KILOGRAM
     Route: 048
  16. BETAMETHASONE. [Suspect]
     Active Substance: BETAMETHASONE
     Indication: PRODUCT USED FOR UNKNOWN INDICATION
     Dosage: UNK
     Route: 064
  17. TRIMETHOPRIM SULFAMETHOXAZOLE [Suspect]
     Active Substance: SULFAMETHOXAZOLE\TRIMETHOPRIM
     Dosage: 2 MILLIGRAM(S)/KILOGRAM EVERY 6 HOURS
     Route: 048
  18. CEFOTAXIME [Suspect]
     Active Substance: CEFOTAXIME SODIUM
     Indication: RENAL FAILURE
     Dosage: 50 MILLIGRAM(S)/KILOGRAM;EVERY 12 HOURS
     Route: 042
  19. LEVOFLOXACIN. [Suspect]
     Active Substance: LEVOFLOXACIN
     Dosage: 1 MILLIGRAM(S)/KILOGRAM;EVERY 12 HOURS
     Route: 048

REACTIONS (13)
  - Renal impairment [Fatal]
  - Hypotonia [Unknown]
  - Foetal exposure during pregnancy [Unknown]
  - Lethargy [Unknown]
  - Urine output decreased [Unknown]
  - Sepsis [Fatal]
  - Pneumonia bacterial [Fatal]
  - Stenotrophomonas infection [Fatal]
  - Respiratory disorder [Unknown]
  - Premature baby [Fatal]
  - Renal failure [Fatal]
  - Umbilical erythema [Unknown]
  - Maternal drugs affecting foetus [None]
